FAERS Safety Report 10346869 (Version 1)
Quarter: 2014Q3

REPORT INFORMATION
  Report Type: Report from Study
  Country: PE (occurrence: PE)
  Receive Date: 20140729
  Receipt Date: 20140729
  Transmission Date: 20150326
  Serious: Yes (Death)
  Sender: FDA-Public Use
  Company Number: PE-ASTRAZENECA-2014SE54695

PATIENT
  Age: 76 Year
  Sex: Female

DRUGS (1)
  1. SYMBICORT [Suspect]
     Active Substance: BUDESONIDE\FORMOTEROL FUMARATE DIHYDRATE
     Dosage: 160 UG FOUR TIMES A DAY
     Route: 055
     Dates: start: 20071209

REACTIONS (1)
  - Death [Fatal]

NARRATIVE: CASE EVENT DATE: 20140627
